FAERS Safety Report 6527477-X (Version None)
Quarter: 2010Q1

REPORT INFORMATION
  Report Type: 
  Country: None (occurrence: None)
  Receive Date: 20100104
  Receipt Date: 20100104
  Transmission Date: 20100710
  Serious: Yes (Other)
  Sender: FDA-Public Use
  Company Number: None

PATIENT
  Sex: Male
  Weight: 80.7403 kg

DRUGS (1)
  1. TYLENOL [Suspect]
     Indication: ARTHRITIS
     Dosage: 2 CAPLETS EVERY 8 HOURS - 2 TO 4 CAPLETS WHEN NEED
     Dates: start: 20090701, end: 20091222

REACTIONS (6)
  - ABDOMINAL PAIN UPPER [None]
  - HEADACHE [None]
  - NAUSEA [None]
  - POOR QUALITY DRUG ADMINISTERED [None]
  - PRODUCT CONTAMINATION [None]
  - PRODUCT QUALITY ISSUE [None]
